FAERS Safety Report 5682171-2 (Version None)
Quarter: 2008Q1

REPORT INFORMATION
  Report Type: 
  Country: None (occurrence: None)
  Receive Date: 20080325
  Receipt Date: 20080310
  Transmission Date: 20080703
  Serious: Yes (Life-Threatening)
  Sender: FDA-Public Use
  Company Number: 2008BM000012

PATIENT
  Age: 14 Year
  Sex: Male
  Weight: 43 kg

DRUGS (3)
  1. NAGLAZYME [Suspect]
     Indication: MUCOPOLYSACCHARIDOSIS VI
     Dosage: QW;IV; 43 MG;QW;IV
     Route: 042
     Dates: start: 20020426, end: 20080115
  2. NAGLAZYME [Suspect]
     Indication: MUCOPOLYSACCHARIDOSIS VI
     Dosage: QW;IV; 43 MG;QW;IV
     Route: 042
     Dates: start: 20080115
  3. CLEMASTINE FUMARATE [Concomitant]

REACTIONS (8)
  - BLOOD PRESSURE INCREASED [None]
  - BODY TEMPERATURE INCREASED [None]
  - CYANOSIS [None]
  - DYSPNOEA [None]
  - OXYGEN SATURATION DECREASED [None]
  - RASH [None]
  - TACHYCARDIA [None]
  - TREMOR [None]
